FAERS Safety Report 6796316-4 (Version None)
Quarter: 2010Q2

REPORT INFORMATION
  Report Type: 
  Country: None (occurrence: None)
  Receive Date: 20100625
  Receipt Date: 20100617
  Transmission Date: 20101027
  Serious: Yes (Other)
  Sender: FDA-Public Use
  Company Number: US-AMGEN-TCS405213

PATIENT
  Sex: Female

DRUGS (6)
  1. ENBREL [Suspect]
     Indication: PSORIASIS
     Route: 058
     Dates: start: 20071201
  2. FOLIC ACID [Concomitant]
     Dates: start: 20080424, end: 20091001
  3. METHOTREXATE [Concomitant]
     Dates: start: 20080424, end: 20091001
  4. SPIRONOLACTONE [Concomitant]
     Dates: start: 20070802
  5. MINOCYCLINE HCL [Concomitant]
     Dates: start: 20091001
  6. CLOBETASOL PROPIONATE [Concomitant]
     Dates: start: 20081001

REACTIONS (3)
  - HYSTERECTOMY [None]
  - UTERINE POLYP [None]
  - VAGINAL HAEMORRHAGE [None]
